FAERS Safety Report 5216673-X (Version None)
Quarter: 2006Q4

REPORT INFORMATION
  Report Type: 
  Country: None (occurrence: None)
  Receive Date: 20061130
  Receipt Date: 20060809
  Transmission Date: 20070319
  Serious: Yes (Other)
  Sender: FDA-Public Use
  Company Number: US_0510122687

PATIENT
  Age: 47 Year
  Sex: Male
  Weight: 130.6 kg

DRUGS (4)
  1. ZYPREXA [Suspect]
     Indication: POST-TRAUMATIC STRESS DISORDER
     Dosage: 2.5 MG
     Dates: start: 20011115, end: 20030109
  2. PROZAC [Concomitant]
  3. TENORMIN /NEZ/(ATENOLOL) [Concomitant]
  4. MICROZIDE [Concomitant]

REACTIONS (3)
  - DIABETES MELLITUS NON-INSULIN-DEPENDENT [None]
  - METABOLIC DISORDER [None]
  - WEIGHT INCREASED [None]
